FAERS Safety Report 13617657 (Version 1)
Quarter: 2017Q2

REPORT INFORMATION
  Report Type: Spontaneous
  Country: US (occurrence: US)
  Receive Date: 20170606
  Receipt Date: 20170606
  Transmission Date: 20170830
  Serious: No
  Sender: FDA-Public Use
  Company Number: US-SA-2017SA005060

PATIENT
  Sex: Female

DRUGS (1)
  1. LANTUS [Suspect]
     Active Substance: INSULIN GLARGINE
     Dosage: START DATE: 15-20 YEARS
     Route: 065

REACTIONS (7)
  - Rash [Unknown]
  - Carpal tunnel syndrome [Unknown]
  - Arthritis [Unknown]
  - Dyspnoea [Unknown]
  - Hypersensitivity [Unknown]
  - Peripheral swelling [Unknown]
  - Dizziness [Unknown]
